FAERS Safety Report 7454328-1 (Version None)
Quarter: 2011Q2

REPORT INFORMATION
  Report Type: 
  Country: None (occurrence: None)
  Receive Date: 20110503
  Receipt Date: 20110420
  Transmission Date: 20111010
  Serious: Yes (Other)
  Sender: FDA-Public Use
  Company Number: US-JNJFOC-20110409563

PATIENT

DRUGS (1)
  1. DORIBAX [Suspect]
     Indication: ANTI-INFECTIVE THERAPY
     Route: 041

REACTIONS (1)
  - CONDITION AGGRAVATED [None]
